FAERS Safety Report 7009614-6 (Version None)
Quarter: 2010Q3

REPORT INFORMATION
  Report Type: 
  Country: None (occurrence: None)
  Receive Date: 20100923
  Receipt Date: 20100913
  Transmission Date: 20110219
  Serious: Yes (Other)
  Sender: FDA-Public Use
  Company Number: IT-PFIZER INC-2010115333

PATIENT
  Age: 45 Year
  Sex: Male

DRUGS (2)
  1. LYRICA [Suspect]
     Indication: NEURALGIA
     Dosage: 75 MG, 2X/DAY
  2. CORTISONE [Concomitant]
     Dosage: 8 MG, 1X/DAY

REACTIONS (2)
  - HYPERHIDROSIS [None]
  - HYPOAESTHESIA ORAL [None]
